FAERS Safety Report 24551873 (Version 1)
Quarter: 2024Q4

REPORT INFORMATION
  Report Type: Spontaneous
  Country: SK (occurrence: SK)
  Receive Date: 20241026
  Receipt Date: 20241026
  Transmission Date: 20250115
  Serious: Yes (Other)
  Sender: AMGEN
  Company Number: SK-ABBVIE-5954441

PATIENT
  Sex: Female

DRUGS (3)
  1. ADALIMUMAB [Suspect]
     Active Substance: ADALIMUMAB
     Indication: Colitis ulcerative
     Dosage: 80 MILLIGRAM, EVERY 7 DAYS
     Route: 058
  2. ADALIMUMAB [Suspect]
     Active Substance: ADALIMUMAB
     Dosage: 40 MILLIGRAM, EVERY 7 DAYS
     Route: 058
  3. ADALIMUMAB [Suspect]
     Active Substance: ADALIMUMAB
     Dosage: 160 MILLIGRAM, EVERY 7 DAYS
     Route: 058

REACTIONS (12)
  - Colitis ulcerative [Unknown]
  - Anal abscess [Unknown]
  - Colitis ulcerative [Unknown]
  - Proctalgia [Unknown]
  - Body temperature increased [Unknown]
  - Chills [Unknown]
  - General physical health deterioration [Unknown]
  - Herpes zoster [Unknown]
  - Diarrhoea [Unknown]
  - Anaemia [Unknown]
  - Abdominal pain [Unknown]
  - Drug level decreased [Unknown]

NARRATIVE: CASE EVENT DATE: 20240104
